FAERS Safety Report 10342497 (Version 1)
Quarter: 2014Q3

REPORT INFORMATION
  Report Type: Spontaneous
  Country: US (occurrence: US)
  Receive Date: 20140725
  Receipt Date: 20140725
  Transmission Date: 20150326
  Serious: No
  Sender: FDA-Public Use
  Company Number: US-009507513-1406USA013333

PATIENT
  Age: 26 Year
  Sex: Male
  Weight: 68.27 kg

DRUGS (1)
  1. COPPERTONE OIL FREE FACES SPF 50 PLUS [Suspect]
     Active Substance: AVOBENZONE\HOMOSALATE\OCTISALATE\OCTOCRYLENE\OXYBENZONE
     Indication: PROPHYLAXIS AGAINST SOLAR RADIATION
     Dosage: UNK, PRN
     Route: 061
     Dates: start: 20140607

REACTIONS (4)
  - Accidental exposure to product [Unknown]
  - Eye irritation [Recovering/Resolving]
  - Hyperhidrosis [Recovering/Resolving]
  - Ocular hyperaemia [Recovering/Resolving]

NARRATIVE: CASE EVENT DATE: 20140607
